FAERS Safety Report 7033545-9 (Version None)
Quarter: 2010Q4

REPORT INFORMATION
  Report Type: 
  Country: None (occurrence: None)
  Receive Date: 20101007
  Receipt Date: 20100923
  Transmission Date: 20110411
  Serious: Yes (Hospitalization)
  Sender: FDA-Public Use
  Company Number: PHHY2010US63580

PATIENT
  Age: 30 Year
  Sex: Female

DRUGS (5)
  1. LETROZOLE [Suspect]
     Indication: ARTIFICIAL INSEMINATION BY PARTNER
  2. METFORMIN [Concomitant]
     Indication: POLYCYSTIC OVARIES
  3. ULTRASOUND THERAPY [Concomitant]
  4. GONADOTROPINS [Concomitant]
  5. METHOTREXATE [Concomitant]
     Dosage: 50 MG
     Route: 030

REACTIONS (9)
  - ABORTION SPONTANEOUS INCOMPLETE [None]
  - DRUG EXPOSURE DURING PREGNANCY [None]
  - HAEMATOCRIT DECREASED [None]
  - HAEMORRHAGE [None]
  - LAPAROSCOPY [None]
  - OVARIAN ADENOMA [None]
  - POST ABORTION HAEMORRHAGE [None]
  - RUPTURED ECTOPIC PREGNANCY [None]
  - SALPINGECTOMY [None]
